FAERS Safety Report 16260331 (Version 1)
Quarter: 2019Q2

REPORT INFORMATION
  Report Type: Spontaneous
  Country: US (occurrence: US)
  Receive Date: 20190430
  Receipt Date: 20190430
  Transmission Date: 20190711
  Serious: No
  Sender: FDA-Public Use
  Company Number: None

PATIENT
  Sex: Female

DRUGS (1)
  1. ATENOLOL. [Suspect]
     Active Substance: ATENOLOL

REACTIONS (7)
  - Nausea [None]
  - Diarrhoea [None]
  - Vomiting [None]
  - Dyspnoea [None]
  - Tinnitus [None]
  - Feeling cold [None]
  - Dizziness [None]

NARRATIVE: CASE EVENT DATE: 20190430
